FAERS Safety Report 5442914-X (Version None)
Quarter: 2007Q3

REPORT INFORMATION
  Report Type: 
  Country: None (occurrence: None)
  Receive Date: 20070830
  Receipt Date: 20070820
  Transmission Date: 20080115
  Serious: Yes (Other)
  Sender: FDA-Public Use
  Company Number: 2007AL003425

PATIENT
  Age: 21 Year
  Sex: Female

DRUGS (2)
  1. MIRTAZAPINE [Suspect]
     Indication: DEPRESSION
     Dosage: 15 MG; QD; PO
     Route: 048
     Dates: start: 20061023, end: 20070726
  2. CERAZETTE [Concomitant]

REACTIONS (2)
  - MOVEMENT DISORDER [None]
  - SLEEP ATTACKS [None]
